FAERS Safety Report 21354426 (Version 1)
Quarter: 2022Q3

REPORT INFORMATION
  Report Type: Report from Study
  Country: None (occurrence: BR)
  Receive Date: 20220920
  Receipt Date: 20220920
  Transmission Date: 20221026
  Serious: Yes (Hospitalization)
  Sender: FDA-Public Use
  Company Number: BR-AKCEA THERAPEUTICS, INC.-2022IS004007

PATIENT
  Sex: Female

DRUGS (2)
  1. TEGSEDI [Suspect]
     Active Substance: INOTERSEN SODIUM
     Indication: Product used for unknown indication
     Route: 058
  2. DEVICE [Suspect]
     Active Substance: DEVICE

REACTIONS (2)
  - Pneumonia [Recovering/Resolving]
  - Thrombocytopenia [Recovering/Resolving]
